FAERS Safety Report 5270029-2 (Version None)
Quarter: 2007Q1

REPORT INFORMATION
  Report Type: 
  Country: None (occurrence: None)
  Receive Date: 20061213
  Receipt Date: 20030730
  Transmission Date: 20070707
  Serious: Yes (Other)
  Sender: FDA-Public Use
  Company Number: 2003UW09649

PATIENT
  Sex: Male
  Weight: 84 kg

DRUGS (4)
  1. IRESSA [Suspect]
  2. OXYCONTIN [Concomitant]
  3. TOPROL-XL [Concomitant]
  4. ZOCOR [Concomitant]

REACTIONS (1)
  - CYSTITIS HAEMORRHAGIC [None]
